FAERS Safety Report 8614191-X (Version None)
Quarter: 2012Q3

REPORT INFORMATION
  Report Type: 
  Country: None (occurrence: None)
  Receive Date: 20120823
  Receipt Date: 20120814
  Transmission Date: 20120928
  Serious: Yes (Hospitalization)
  Sender: FDA-Public Use
  Company Number: US-JNJFOC-20120708415

PATIENT
  Age: 32 Year
  Sex: Female
  Weight: 82.56 kg

DRUGS (6)
  1. FISH OIL [Concomitant]
     Route: 065
  2. COUMADIN [Concomitant]
     Route: 065
  3. MULTI-VITAMINS [Concomitant]
     Route: 065
  4. REMICADE [Suspect]
     Indication: PSORIATIC ARTHROPATHY
     Route: 042
     Dates: start: 20120614
  5. REMICADE [Suspect]
     Dosage: 0,2,6,EVERY 8
     Route: 042
     Dates: start: 20120601
  6. PREDNISONE TAB [Concomitant]
     Indication: PSORIATIC ARTHROPATHY
     Route: 065

REACTIONS (3)
  - PAIN IN EXTREMITY [None]
  - PULMONARY EMBOLISM [None]
  - OEDEMA PERIPHERAL [None]
